FAERS Safety Report 10782722 (Version 1)
Quarter: 2015Q1

REPORT INFORMATION
  Report Type: Spontaneous
  Country: US (occurrence: US)
  Receive Date: 20150210
  Receipt Date: 20150210
  Transmission Date: 20150721
  Serious: Yes (Other)
  Sender: FDA-Public Use
  Company Number: US-GLAXOSMITHKLINE-A1078302A

PATIENT

DRUGS (1)
  1. LAMICTAL XR [Suspect]
     Active Substance: LAMOTRIGINE
     Indication: PRODUCT USED FOR UNKNOWN INDICATION
     Dosage: 50 MG WITH A START DATE OF 01 JULY 2011100 MG WITH A START DATE OF 12 APRIL 2011
     Route: 065
     Dates: start: 20130619

REACTIONS (2)
  - Drug dose omission [Unknown]
  - Seizure [Unknown]
